FAERS Safety Report 14269032 (Version 7)
Quarter: 2018Q2

REPORT INFORMATION
  Report Type: Spontaneous
  Country: DE (occurrence: DE)
  Receive Date: 20171211
  Receipt Date: 20180619
  Transmission Date: 20180711
  Serious: Yes (Hospitalization, Other)
  Sender: FDA-Public Use
  Company Number: DE-OTSUKA-2017_025889

PATIENT
  Age: 55 Year
  Sex: Female

DRUGS (33)
  1. ARIPIPRAZOLE. [Suspect]
     Active Substance: ARIPIPRAZOLE
     Indication: SCHIZOPHRENIA
     Dosage: 30 MG, QD
     Route: 048
     Dates: start: 20161001, end: 20170801
  2. ARIPIPRAZOLE. [Suspect]
     Active Substance: ARIPIPRAZOLE
     Dosage: 10 MG, QD (1 IN 1 D)
     Route: 048
     Dates: start: 20170806, end: 20170807
  3. QUETIAPINE. [Suspect]
     Active Substance: QUETIAPINE
     Dosage: 900 MG, QD (900 MG,1 IN 1 D)
     Route: 048
     Dates: start: 20170804, end: 20170808
  4. QUETIAPINE. [Suspect]
     Active Substance: QUETIAPINE
     Dosage: 800 MG, QD (800 MG,1 IN 1 D)
     Route: 048
     Dates: start: 20170809, end: 20170830
  5. LORAZEPAM. [Concomitant]
     Active Substance: LORAZEPAM
     Dosage: 1.5 MG, QD
     Route: 048
     Dates: start: 20170731
  6. LORAZEPAM. [Concomitant]
     Active Substance: LORAZEPAM
     Dosage: 1.5 MG, QD
     Route: 048
     Dates: start: 20170803, end: 20170809
  7. AMISULPRIDE [Concomitant]
     Active Substance: AMISULPRIDE
     Indication: PRODUCT USED FOR UNKNOWN INDICATION
     Dosage: 400 MG, UNK
     Route: 065
     Dates: start: 20170806
  8. AMISULPRIDE [Concomitant]
     Active Substance: AMISULPRIDE
     Dosage: 600 MG, UNK
     Route: 065
     Dates: start: 20170809
  9. AMISULPRIDE [Concomitant]
     Active Substance: AMISULPRIDE
     Dosage: 800 MG, UNK
     Route: 065
     Dates: start: 20170806
  10. AMISULPRIDE [Concomitant]
     Active Substance: AMISULPRIDE
     Dosage: 400 MG, UNK
     Route: 065
  11. AMISULPRIDE [Concomitant]
     Active Substance: AMISULPRIDE
     Dosage: 500 MG, UNK
     Route: 065
     Dates: start: 20170809
  12. AMISULPRIDE [Concomitant]
     Active Substance: AMISULPRIDE
     Dosage: 600 MG, UNK
     Route: 065
  13. QUETIAPINE. [Suspect]
     Active Substance: QUETIAPINE
     Indication: SCHIZOPHRENIA
     Dosage: 800 MG, QD (800 MG,1 IN 1 D)
     Route: 048
     Dates: start: 20170801, end: 20170803
  14. LORAZEPAM. [Concomitant]
     Active Substance: LORAZEPAM
     Dosage: 2 MG, QD
     Route: 048
     Dates: start: 20170731
  15. AMISULPRIDE [Concomitant]
     Active Substance: AMISULPRIDE
     Dosage: 900 MG, UNK
     Route: 065
     Dates: start: 20170901
  16. QUETIAPINE. [Suspect]
     Active Substance: QUETIAPINE
     Dosage: 600 MG, QD (600 MG,1 IN 1 D)
     Route: 048
     Dates: start: 20170830, end: 20170830
  17. LORAZEPAM. [Concomitant]
     Active Substance: LORAZEPAM
     Dosage: 0.5 MG, QD
     Route: 048
     Dates: start: 20170817
  18. AMISULPRIDE [Concomitant]
     Active Substance: AMISULPRIDE
     Dosage: 600 MG, UNK
     Route: 065
     Dates: start: 20170822
  19. QUETIAPINE. [Suspect]
     Active Substance: QUETIAPINE
     Dosage: 700 MG, QD (700 MG,1 IN 1 D)
     Route: 048
     Dates: start: 20170731
  20. AMISULPRIDE [Concomitant]
     Active Substance: AMISULPRIDE
     Dosage: 500 MG, UNK
     Route: 065
     Dates: start: 20170808
  21. AMISULPRIDE [Concomitant]
     Active Substance: AMISULPRIDE
     Dosage: 900 MG, UNK
     Route: 065
  22. ARIPIPRAZOLE. [Suspect]
     Active Substance: ARIPIPRAZOLE
     Dosage: 25 MG, QD (1 IN 1 D)
     Route: 048
     Dates: start: 20170805
  23. LORAZEPAM. [Concomitant]
     Active Substance: LORAZEPAM
     Indication: PRODUCT USED FOR UNKNOWN INDICATION
     Dosage: 2 MG, QD
     Route: 048
     Dates: start: 20170801, end: 20170802
  24. LORAZEPAM. [Concomitant]
     Active Substance: LORAZEPAM
     Dosage: 2 MG, QD
     Route: 048
     Dates: start: 20170810, end: 20170811
  25. LORAZEPAM. [Concomitant]
     Active Substance: LORAZEPAM
     Dosage: 2 MG, QD
     Route: 048
     Dates: start: 20170812, end: 20170814
  26. LORAZEPAM. [Concomitant]
     Active Substance: LORAZEPAM
     Dosage: 1 MG, QD
     Route: 048
     Dates: start: 20170817, end: 20170817
  27. LORAZEPAM. [Concomitant]
     Active Substance: LORAZEPAM
     Dosage: 1 MG, QD
     Route: 048
     Dates: start: 20170815, end: 20170816
  28. AMISULPRIDE [Concomitant]
     Active Substance: AMISULPRIDE
     Dosage: 500 MG, UNK
     Route: 065
  29. AMISULPRIDE [Concomitant]
     Active Substance: AMISULPRIDE
     Dosage: 800 MG, UNK
     Route: 065
  30. QUETIAPINE. [Suspect]
     Active Substance: QUETIAPINE
     Dosage: 600 MG, QD
     Route: 048
     Dates: start: 20170830
  31. LORAZEPAM. [Concomitant]
     Active Substance: LORAZEPAM
     Dosage: 2 MG, QD
     Route: 048
     Dates: start: 20170803, end: 20170809
  32. LORAZEPAM. [Concomitant]
     Active Substance: LORAZEPAM
     Dosage: 1.5 MG, QD
     Route: 048
     Dates: start: 20170812, end: 20170814
  33. AMISULPRIDE [Concomitant]
     Active Substance: AMISULPRIDE
     Dosage: 800 MG, UNK
     Route: 065
     Dates: start: 20170824

REACTIONS (5)
  - Alopecia [Not Recovered/Not Resolved]
  - Blood folate decreased [Unknown]
  - Fatigue [Not Recovered/Not Resolved]
  - Macrocytosis [Unknown]
  - Vitamin B12 decreased [Unknown]

NARRATIVE: CASE EVENT DATE: 20170808
